FAERS Safety Report 18080012 (Version 1)
Quarter: 2020Q3

REPORT INFORMATION
  Report Type: Report from Study
  Country: CA (occurrence: CA)
  Receive Date: 20200728
  Receipt Date: 20200728
  Transmission Date: 20201103
  Serious: Yes (Other)
  Sender: FDA-Public Use
  Company Number: CA-JNJFOC-20200500024

PATIENT
  Age: 42 Year
  Sex: Female

DRUGS (2)
  1. STELARA [Suspect]
     Active Substance: USTEKINUMAB
     Dosage: LAST DOSE ON 29?APR?2020
     Route: 058
  2. STELARA [Suspect]
     Active Substance: USTEKINUMAB
     Indication: CROHN^S DISEASE
     Route: 058

REACTIONS (4)
  - Inappropriate schedule of product administration [Unknown]
  - Crohn^s disease [Not Recovered/Not Resolved]
  - Stress [Unknown]
  - Localised infection [Recovered/Resolved]

NARRATIVE: CASE EVENT DATE: 20200409
